FAERS Safety Report 13423524 (Version 2)
Quarter: 2017Q2

REPORT INFORMATION
  Report Type: Spontaneous
  Country: US (occurrence: US)
  Receive Date: 20170410
  Receipt Date: 20170502
  Transmission Date: 20170830
  Serious: No
  Sender: FDA-Public Use
  Company Number: US-PFIZER INC-2017151943

PATIENT
  Age: 48 Year
  Sex: Female
  Weight: 90.7 kg

DRUGS (5)
  1. GABAPENTIN. [Suspect]
     Active Substance: GABAPENTIN
     Indication: FIBROMYALGIA
     Dosage: 800 MG, 1X/DAY
     Dates: start: 2009
  2. GABAPENTIN. [Suspect]
     Active Substance: GABAPENTIN
     Dosage: 400 MG, 3X/DAY
     Dates: end: 201610
  3. CYCLOBENZAPRINE. [Concomitant]
     Active Substance: CYCLOBENZAPRINE
     Indication: MUSCLE SPASMS
     Dosage: 10 MG, AS NEEDED (ONE THREE TIMES A DAY)
     Dates: start: 2009
  4. GABAPENTIN. [Suspect]
     Active Substance: GABAPENTIN
     Indication: PAIN
     Dosage: 3200 MG, DAILY
  5. ATENOLOL. [Concomitant]
     Active Substance: ATENOLOL
     Indication: BLOOD PRESSURE ABNORMAL
     Dosage: 25 MG, 1X/DAY (ONCE AT BEDTIME)
     Dates: start: 2009

REACTIONS (6)
  - Amnesia [Recovered/Resolved]
  - Burning sensation [Unknown]
  - Condition aggravated [Recovered/Resolved]
  - Insomnia [Unknown]
  - Drug ineffective for unapproved indication [Unknown]
  - Feeling abnormal [Unknown]

NARRATIVE: CASE EVENT DATE: 2009
